FAERS Safety Report 5034342-6 (Version None)
Quarter: 2006Q2

REPORT INFORMATION
  Report Type: 
  Country: None (occurrence: None)
  Receive Date: 20060626
  Receipt Date: 20060323
  Transmission Date: 20061013
  Serious: Yes (Hospitalization)
  Sender: FDA-Public Use
  Company Number: DE-SANOFI-SYNTHELABO-A01200602324

PATIENT
  Sex: Male

DRUGS (7)
  1. FLUTAMIDE [Concomitant]
     Indication: PROSTATE CANCER
     Route: 065
     Dates: start: 20060120
  2. BISOPROLOL [Concomitant]
     Dosage: UNK
     Route: 065
  3. AMITRIPTYLINE HCL [Concomitant]
     Dosage: UNK
     Route: 065
  4. NITRAZEPAM [Concomitant]
     Dosage: UNK
     Route: 065
     Dates: end: 20060305
  5. PREDNISONE [Concomitant]
     Dosage: UNK
     Route: 065
     Dates: end: 20060305
  6. CELECOXIB [Concomitant]
     Dosage: UNK
     Route: 065
     Dates: end: 20060305
  7. ELIGARD [Suspect]
     Indication: PROSTATE CANCER
     Route: 058
     Dates: start: 20060127

REACTIONS (8)
  - BACK PAIN [None]
  - C-REACTIVE PROTEIN INCREASED [None]
  - INSOMNIA [None]
  - MYALGIA [None]
  - PAIN [None]
  - PAIN IN EXTREMITY [None]
  - PYREXIA [None]
  - VIRAL INFECTION [None]
